FAERS Safety Report 10353034 (Version 1)
Quarter: 2014Q3

REPORT INFORMATION
  Report Type: Spontaneous
  Country: US (occurrence: US)
  Receive Date: 20140730
  Receipt Date: 20140730
  Transmission Date: 20150326
  Serious: No
  Sender: FDA-Public Use
  Company Number: US-ABBVIE-14P-163-1231657-00

PATIENT
  Age: 50 Year
  Sex: Female

DRUGS (4)
  1. SYNTHROID [Suspect]
     Active Substance: LEVOTHYROXINE SODIUM
     Indication: PRODUCT USED FOR UNKNOWN INDICATION
  2. LEVOXYL [Interacting]
     Active Substance: LEVOTHYROXINE SODIUM
     Indication: PRODUCT USED FOR UNKNOWN INDICATION
  3. UNITHROID [Interacting]
     Active Substance: LEVOTHYROXINE SODIUM
     Indication: PRODUCT USED FOR UNKNOWN INDICATION
  4. AMITRIPTYLINE HYDROCHLORIDE. [Interacting]
     Active Substance: AMITRIPTYLINE HYDROCHLORIDE
     Indication: PRODUCT USED FOR UNKNOWN INDICATION

REACTIONS (13)
  - Irritable bowel syndrome [Unknown]
  - Fibromyalgia [Unknown]
  - Burning sensation [Unknown]
  - Eye irritation [Unknown]
  - Facial pain [Unknown]
  - Erythema [Unknown]
  - Abnormal sensation in eye [Unknown]
  - Ocular hyperaemia [Unknown]
  - Visual acuity reduced [Unknown]
  - Cellulitis [Unknown]
  - Visual impairment [Unknown]
  - Drug interaction [Unknown]
  - Pain [Unknown]
